FAERS Safety Report 5739149-X (Version None)
Quarter: 2008Q2

REPORT INFORMATION
  Report Type: 
  Country: None (occurrence: None)
  Receive Date: 20080515
  Receipt Date: 20080508
  Transmission Date: 20081010
  Serious: Yes (Other)
  Sender: FDA-Public Use
  Company Number: B0361634A

PATIENT
  Age: 26 Year
  Sex: Female

DRUGS (6)
  1. PAROXETINE HCL [Suspect]
     Indication: DEPRESSION
     Route: 065
     Dates: start: 19980209
  2. EFFEXOR [Concomitant]
     Dates: start: 20020829
  3. AMITRIPTYLINE HCL [Concomitant]
     Indication: HEADACHE
     Dosage: 10MG PER DAY
     Dates: start: 20030106
  4. DOTHIEPIN HYDROCHLORIDE [Concomitant]
     Dates: start: 20051128
  5. SERTRALINE [Concomitant]
     Indication: DEPRESSION
     Dates: start: 20070330
  6. ZOPICLONE [Concomitant]
     Dates: start: 20070330

REACTIONS (9)
  - COORDINATION ABNORMAL [None]
  - DRUG WITHDRAWAL SYNDROME [None]
  - FEELING ABNORMAL [None]
  - HEADACHE [None]
  - ILL-DEFINED DISORDER [None]
  - INTENTIONAL SELF-INJURY [None]
  - SLEEP DISORDER [None]
  - SPEECH DISORDER [None]
  - TREMOR [None]
